FAERS Safety Report 23146841 (Version 1)
Quarter: 2023Q4

REPORT INFORMATION
  Report Type: Spontaneous
  Country: NL (occurrence: NL)
  Receive Date: 20231105
  Receipt Date: 20231105
  Transmission Date: 20240109
  Serious: Yes (Other)
  Sender: FDA-Public Use
  Company Number: None

PATIENT
  Age: 6 Year
  Sex: Male
  Weight: 30 kg

DRUGS (2)
  1. DITROPAN [Suspect]
     Active Substance: OXYBUTYNIN CHLORIDE
     Indication: Urinary incontinence
     Dosage: 2,5ML
     Route: 048
     Dates: start: 2021
  2. DITROPAN [Suspect]
     Active Substance: OXYBUTYNIN CHLORIDE
     Indication: Vitamin B12 deficiency

REACTIONS (4)
  - Vision blurred [Recovering/Resolving]
  - Fatigue [Recovering/Resolving]
  - Rash macular [Recovering/Resolving]
  - Muscular weakness [Recovering/Resolving]
